FAERS Safety Report 8227660-1 (Version None)
Quarter: 2012Q1

REPORT INFORMATION
  Report Type: 
  Country: None (occurrence: None)
  Receive Date: 20120322
  Receipt Date: 20120319
  Transmission Date: 20120608
  Serious: Yes (Hospitalization, Other)
  Sender: FDA-Public Use
  Company Number: US-PFIZER INC-2012071707

PATIENT
  Sex: Female
  Weight: 48.526 kg

DRUGS (5)
  1. CHANTIX [Suspect]
     Dosage: UNK
     Route: 048
     Dates: start: 20110301, end: 20110501
  2. OXYCODONE [Concomitant]
     Indication: PAIN
     Dosage: UNK
  3. CHANTIX [Suspect]
     Indication: SMOKING CESSATION THERAPY
     Dosage: 0.5 MG, 1X/DAY
     Route: 048
     Dates: start: 20110301, end: 20110301
  4. SURMONTIL [Concomitant]
     Indication: INSOMNIA
     Dosage: UNK
  5. CALCIUM/VITAMIN D [Concomitant]
     Indication: OSTEOPOROSIS
     Dosage: UNK

REACTIONS (12)
  - PNEUMONIA [None]
  - RENAL NEOPLASM [None]
  - NAUSEA [None]
  - VITAMIN D DECREASED [None]
  - WEIGHT DECREASED [None]
  - INTERVERTEBRAL DISC PROTRUSION [None]
  - VOMITING IN PREGNANCY [None]
  - CHRONIC OBSTRUCTIVE PULMONARY DISEASE [None]
  - EMPHYSEMA [None]
  - VOMITING [None]
  - BRONCHITIS [None]
  - ROAD TRAFFIC ACCIDENT [None]
